FAERS Safety Report 8773873 (Version 4)
Quarter: 2012Q4

REPORT INFORMATION
  Report Type: 
  Country: JP (occurrence: JP)
  Receive Date: 20120907
  Receipt Date: 20121205
  Transmission Date: 20130627
  Serious: Yes (Other)
  Sender: FDA-Public Use
  Company Number: JP-UCBSA-064632

PATIENT
  Age: 78 Year
  Sex: Female
  Weight: 29.9 kg

DRUGS (9)
  1. E KEPPRA [Suspect]
     Indication: EPILEPSY
     Route: 048
     Dates: start: 20120314, end: 20121002
  2. MENATETRENONE [Concomitant]
     Dosage: DAILY DOSE-30 MG
     Route: 048
     Dates: start: 20111125
  3. WARKMIN [Concomitant]
     Dosage: DAILY DOSE-0.25MCG
     Route: 048
     Dates: start: 20111125
  4. EXCELASE [Concomitant]
     Dosage: DAILY DOSE-1.2 G
     Route: 048
     Dates: start: 20120119
  5. CARBAMAZEPINE [Concomitant]
     Route: 048
     Dates: start: 20120314
  6. LAXOBERON [Concomitant]
     Indication: CONSTIPATION
     Dosage: DAILY DOSE-2.5 MG
     Route: 048
  7. PL [Concomitant]
     Dosage: DAILY DOSE-4 G
     Route: 048
  8. LOXONIN [Concomitant]
     Dosage: DAILY DOSE-50 MG
     Route: 062
  9. KARY UNI [Concomitant]
     Route: 047

REACTIONS (1)
  - Visual impairment [Not Recovered/Not Resolved]
